FAERS Safety Report 7499028-7 (Version None)
Quarter: 2011Q2

REPORT INFORMATION
  Report Type: 
  Country: None (occurrence: None)
  Receive Date: 20110524
  Receipt Date: 20090930
  Transmission Date: 20111010
  Serious: Yes (Hospitalization, Other)
  Sender: FDA-Public Use
  Company Number: US-BAYER-200934857NA

PATIENT
  Age: 58 Year
  Sex: Female
  Weight: 90.703 kg

DRUGS (19)
  1. TRASYLOL [Suspect]
     Dosage: 50 CC/HR INFUSION
     Route: 042
     Dates: start: 20050216, end: 20050216
  2. TRASYLOL [Suspect]
     Indication: CORONARY ENDARTERECTOMY
     Dosage: 200 ML LOADING DOSE
     Route: 042
     Dates: start: 20050216, end: 20050216
  3. IMDUR [Concomitant]
     Dosage: 120MG
     Route: 048
     Dates: start: 20050128
  4. HEPARIN [Concomitant]
     Dosage: UNK
     Dates: start: 20050216
  5. TRASYLOL [Suspect]
     Indication: CORONARY ARTERY BYPASS
     Dosage: 1 ML, ONCE, INITIAL TEST DOSE
     Route: 042
     Dates: start: 20050216, end: 20050216
  6. ACETYLSALICYLIC ACID SRT [Concomitant]
     Dosage: 81MG
     Route: 048
     Dates: start: 20050128
  7. LASIX [Concomitant]
     Dosage: 40MG
     Route: 048
     Dates: start: 20050128
  8. MORPHINE [Concomitant]
     Dosage: 4 GRAM
     Route: 042
     Dates: start: 20050216
  9. DOBUTAMINE HYDROCHLORIDE [Concomitant]
     Dosage: UNK
     Dates: start: 20050216
  10. RED BLOOD CELLS [Concomitant]
     Dosage: 1 UNIT
     Dates: start: 20050216
  11. RED BLOOD CELLS [Concomitant]
     Dosage: 2 UNITS
     Dates: start: 20050219
  12. LIPITOR [Concomitant]
     Dosage: 80MG
     Route: 048
     Dates: start: 20050128
  13. FENTANYL [Concomitant]
     Dosage: UNK
     Dates: start: 20050216
  14. PROPRANOLOL [Concomitant]
     Dosage: 40MG
     Route: 048
  15. CARDIOPLEGIA [Concomitant]
     Dosage: 1700ML
     Dates: start: 20050216
  16. ALBUMIN (HUMAN) [Concomitant]
     Dosage: 100ML
     Route: 042
     Dates: start: 20050216
  17. DIOVAN [Concomitant]
     Dosage: 320MG
     Route: 048
     Dates: start: 20050128
  18. HUMULIN 70/30 [Concomitant]
     Dosage: 40 UNITS TWICE THE DAY
     Route: 058
     Dates: start: 20050128
  19. NITROSTAT [Concomitant]
     Dosage: 0.4 AS NEEDED
     Route: 060
     Dates: start: 20050128

REACTIONS (10)
  - RENAL FAILURE [None]
  - ANXIETY [None]
  - INJURY [None]
  - STRESS [None]
  - RENAL INJURY [None]
  - FEAR [None]
  - PAIN [None]
  - RENAL IMPAIRMENT [None]
  - EMOTIONAL DISTRESS [None]
  - UNEVALUABLE EVENT [None]
